FAERS Safety Report 17400177 (Version 3)
Quarter: 2020Q3

REPORT INFORMATION
  Report Type: Report from Study
  Country: JP (occurrence: JP)
  Receive Date: 20200211
  Receipt Date: 20200708
  Transmission Date: 20201102
  Serious: Yes (Hospitalization)
  Sender: FDA-Public Use
  Company Number: JP-ROCHE-2543723

PATIENT
  Age: 70 Year
  Sex: Male
  Weight: 58.8 kg

DRUGS (7)
  1. RANMARK [Concomitant]
     Active Substance: DENOSUMAB
     Indication: LUNG NEOPLASM MALIGNANT
     Route: 042
     Dates: start: 20190419
  2. BEVACIZUMAB. [Suspect]
     Active Substance: BEVACIZUMAB
     Indication: NON-SMALL CELL LUNG CANCER
     Dosage: ONCE/3?4 WEEKS
     Route: 041
     Dates: start: 20190510, end: 20200128
  3. FRESMIN S [HYDROXOCOBALAMIN] [Concomitant]
     Indication: PREMEDICATION
     Route: 030
     Dates: start: 20190419, end: 20191224
  4. DENOTAS [Concomitant]
     Active Substance: CALCIUM CARBONATE\CHOLECALCIFEROL\MAGNESIUM CARBONATE
     Indication: PROPHYLAXIS
     Route: 048
     Dates: start: 20190420
  5. CARBOPLATIN. [Suspect]
     Active Substance: CARBOPLATIN
     Indication: LUNG NEOPLASM MALIGNANT
     Dosage: AUC5 FOR ONCE/3?4 WEEKS
     Route: 041
     Dates: start: 20190510
  6. ATEZOLIZUMAB. [Suspect]
     Active Substance: ATEZOLIZUMAB
     Indication: NON-SMALL CELL LUNG CANCER
     Dosage: IV INJECTION ONCE EVERY 3?4 WEEKS
     Route: 041
     Dates: start: 20190510, end: 20200128
  7. ALIMTA [Suspect]
     Active Substance: PEMETREXED DISODIUM
     Indication: LUNG NEOPLASM MALIGNANT
     Dosage: ONCE/3?4 WEEKS
     Route: 041
     Dates: start: 20190510

REACTIONS (1)
  - Cerebral infarction [Recovering/Resolving]

NARRATIVE: CASE EVENT DATE: 20200128
